FAERS Safety Report 4683964-0 (Version None)
Quarter: 2005Q2

REPORT INFORMATION
  Report Type: 
  Country: None (occurrence: None)
  Receive Date: 20050607
  Receipt Date: 20050310
  Transmission Date: 20051028
  Serious: Yes (Hospitalization)
  Sender: FDA-Public Use
  Company Number: US-MERCK-0503USA02232

PATIENT
  Age: 61 Year
  Sex: Female
  Weight: 75 kg

DRUGS (4)
  1. VIOXX [Suspect]
     Indication: ARTHRITIS
     Route: 048
     Dates: start: 20010801, end: 20011001
  2. VIOXX [Suspect]
     Route: 048
     Dates: start: 20011011, end: 20040730
  3. ZYRTEC [Concomitant]
     Route: 065
  4. ESTRACE [Concomitant]
     Route: 065

REACTIONS (11)
  - ABDOMINAL PAIN UPPER [None]
  - ATRIOVENTRICULAR BLOCK SECOND DEGREE [None]
  - CARDIAC DISORDER [None]
  - CARDIOMEGALY [None]
  - CHOLELITHIASIS [None]
  - DIZZINESS [None]
  - EMOTIONAL DISTRESS [None]
  - OEDEMA PERIPHERAL [None]
  - PULMONARY GRANULOMA [None]
  - SUBCLAVIAN ARTERY THROMBOSIS [None]
  - THROMBOSIS [None]
